FAERS Safety Report 20157548 (Version 1)
Quarter: 2021Q4

REPORT INFORMATION
  Report Type: Spontaneous
  Country: US (occurrence: US)
  Receive Date: 20211207
  Receipt Date: 20211207
  Transmission Date: 20220303
  Serious: No
  Sender: FDA-Public Use
  Company Number: US-IBSA PHARMA INC.-2021IBS000147

PATIENT

DRUGS (5)
  1. TIROSINT [Suspect]
     Active Substance: LEVOTHYROXINE SODIUM
     Indication: Hypothyroidism
     Dosage: 75 ?G, QD
     Route: 048
     Dates: end: 2020
  2. TIROSINT [Suspect]
     Active Substance: LEVOTHYROXINE SODIUM
     Dosage: 100 ?G, QD
     Route: 048
     Dates: start: 2020
  3. VITAMINS                           /00067501/ [Concomitant]
     Indication: Product used for unknown indication
     Dosage: UNK
  4. COLLAGEN [Concomitant]
     Active Substance: COLLAGEN
     Indication: Product used for unknown indication
     Dosage: UNK, BID
  5. ESTROGEN NOS W/PROGESTERONE [Concomitant]
     Indication: Product used for unknown indication
     Dosage: UNK, BID

REACTIONS (2)
  - Osteoporosis [Not Recovered/Not Resolved]
  - Alopecia [Not Recovered/Not Resolved]

NARRATIVE: CASE EVENT DATE: 20200101
